FAERS Safety Report 6663991-4 (Version None)
Quarter: 2010Q2

REPORT INFORMATION
  Report Type: 
  Country: None (occurrence: None)
  Receive Date: 20100401
  Receipt Date: 20100325
  Transmission Date: 20101027
  Serious: Yes (Hospitalization)
  Sender: FDA-Public Use
  Company Number: US-ASTRAZENECA-2010SE13291

PATIENT
  Age: 54 Year
  Sex: Female
  Weight: 80.7 kg

DRUGS (6)
  1. NEXIUM [Suspect]
     Indication: GASTROOESOPHAGEAL REFLUX DISEASE
     Route: 048
  2. NEXIUM [Suspect]
     Route: 048
  3. NEXIUM [Suspect]
     Route: 048
     Dates: start: 20100315, end: 20100325
  4. OXYCONTIN [Concomitant]
  5. DARVOCET [Concomitant]
  6. MUSCLE RELAXANT MEDICATION [Concomitant]
     Dosage: THREE TIMES A DAY

REACTIONS (6)
  - ABDOMINAL PAIN UPPER [None]
  - DRUG INEFFECTIVE [None]
  - NAUSEA [None]
  - NEPHROLITHIASIS [None]
  - RENAL PAIN [None]
  - WEIGHT DECREASED [None]
